FAERS Safety Report 12654614 (Version 1)
Quarter: 2016Q3

REPORT INFORMATION
  Report Type: Spontaneous
  Country: BR (occurrence: BR)
  Receive Date: 20160816
  Receipt Date: 20160816
  Transmission Date: 20161109
  Serious: Yes (Other)
  Sender: FDA-Public Use
  Company Number: BR-ELI_LILLY_AND_COMPANY-BR201608006651

PATIENT
  Sex: Female
  Weight: 64 kg

DRUGS (7)
  1. HUMALOG [Suspect]
     Active Substance: INSULIN LISPRO
     Dosage: 6 IU, AT LUNCH
     Route: 058
     Dates: start: 2014
  2. HUMULIN N [Concomitant]
     Active Substance: INSULIN HUMAN
     Dosage: 24 IU, EACH MORNING
     Route: 065
  3. METFORMIN HYDROCHLORIDE. [Concomitant]
     Active Substance: METFORMIN HYDROCHLORIDE
     Dosage: 500 MG, AT LUNCH
     Route: 065
  4. HUMALOG [Suspect]
     Active Substance: INSULIN LISPRO
     Dosage: 6 IU, AT DINNER
     Route: 058
     Dates: start: 2014
  5. HUMULIN N [Concomitant]
     Active Substance: INSULIN HUMAN
     Dosage: 30 IU, EACH EVENING
     Route: 065
  6. METFORMIN HYDROCHLORIDE. [Concomitant]
     Active Substance: METFORMIN HYDROCHLORIDE
     Dosage: 1000 MG, AT DINNER
     Route: 065
  7. HUMALOG [Suspect]
     Active Substance: INSULIN LISPRO
     Indication: DIABETES MELLITUS
     Dosage: 3 IU, EACH MORNING
     Route: 058
     Dates: start: 2014

REACTIONS (2)
  - Malaise [Unknown]
  - Blood glucose increased [Unknown]
